FAERS Safety Report 15479447 (Version 1)
Quarter: 2018Q4

REPORT INFORMATION
  Report Type: Spontaneous
  Country: GB (occurrence: GB)
  Receive Date: 20181009
  Receipt Date: 20181009
  Transmission Date: 20190205
  Serious: Yes (Life-Threatening, Hospitalization, Disabling, Other)
  Sender: FDA-Public Use
  Company Number: GB-MYLANLABS-2018M1074099

PATIENT
  Age: 25 Year
  Sex: Female
  Weight: 63.5 kg

DRUGS (1)
  1. OLANZAPINE. [Suspect]
     Active Substance: OLANZAPINE
     Indication: PRODUCT USED FOR UNKNOWN INDICATION
     Dosage: 20 AND REDUCED OVER TIME - NOT BECAUSE OF SIDE AFFECTS
     Route: 048

REACTIONS (10)
  - Blood prolactin increased [Unknown]
  - Loss of libido [Recovering/Resolving]
  - Amenorrhoea [Unknown]
  - Abnormal weight gain [Not Recovered/Not Resolved]
  - Uterine leiomyoma [Unknown]
  - Anaemia [Unknown]
  - Carbohydrate antigen 125 increased [Unknown]
  - Hair growth abnormal [Not Recovered/Not Resolved]
  - Vulvovaginal dryness [Recovering/Resolving]
  - Sex hormone binding globulin increased [Unknown]

NARRATIVE: CASE EVENT DATE: 20150109
